FAERS Safety Report 24545190 (Version 1)
Quarter: 2024Q4

REPORT INFORMATION
  Report Type: Report from Study
  Country: US (occurrence: US)
  Receive Date: 20241024
  Receipt Date: 20241024
  Transmission Date: 20250115
  Serious: Yes (Death)
  Sender: ULTRAGENYX PHARMACEUTICAL
  Company Number: US-ULTRAGENYX PHARMACEUTICAL INC.-US-UGX-24-02013

PATIENT
  Age: 15 Year
  Sex: Female

DRUGS (1)
  1. DOJOLVI [Suspect]
     Active Substance: TRIHEPTANOIN
     Indication: Fatty acid oxidation disorder
     Dosage: 10 MILLILITER, FIVE TIMES DAILY
     Dates: start: 20230127

REACTIONS (1)
  - Death [Fatal]

NARRATIVE: CASE EVENT DATE: 20241006
